FAERS Safety Report 22593208 (Version 7)
Quarter: 2024Q1

REPORT INFORMATION
  Report Type: Report from Study
  Country: CA (occurrence: CA)
  Receive Date: 20230613
  Receipt Date: 20240208
  Transmission Date: 20240409
  Serious: Yes (Other)
  Sender: FDA-Public Use
  Company Number: CA-002147023-NVSC2023CA126133

PATIENT
  Age: 40 Year
  Sex: Female

DRUGS (2)
  1. KESIMPTA [Suspect]
     Active Substance: OFATUMUMAB
     Indication: Relapsing-remitting multiple sclerosis
     Dosage: 20 MG, QMO
     Route: 058
     Dates: start: 20230530
  2. KESIMPTA [Suspect]
     Active Substance: OFATUMUMAB
     Dosage: UNK(4TH INJECTION)
     Route: 065

REACTIONS (4)
  - Nephrolithiasis [Unknown]
  - Burning sensation [Unknown]
  - Fatigue [Unknown]
  - Injection site mass [Unknown]

NARRATIVE: CASE EVENT DATE: 20230530
